FAERS Safety Report 26086670 (Version 1)
Quarter: 2025Q4

REPORT INFORMATION
  Report Type: Report from Study
  Country: US (occurrence: None)
  Receive Date: 20251125
  Receipt Date: 20251125
  Transmission Date: 20260118
  Serious: Yes (Other)
  Sender: UCB
  Company Number: US-UCBSA-2025002253

PATIENT
  Weight: 42.1 kg

DRUGS (2)
  1. FENFLURAMINE [Suspect]
     Active Substance: FENFLURAMINE
     Indication: Severe myoclonic epilepsy of infancy
     Dosage: 9.50 MILLILITER
  2. FENFLURAMINE [Suspect]
     Active Substance: FENFLURAMINE
     Dosage: 4 ML QAM + 4.5 ML QPM

REACTIONS (3)
  - Seizure [Unknown]
  - Dry skin [Recovering/Resolving]
  - Product use issue [Unknown]
